FAERS Safety Report 21304331 (Version 1)
Quarter: 2022Q3

REPORT INFORMATION
  Report Type: Spontaneous
  Country: US (occurrence: None)
  Receive Date: 20220907
  Receipt Date: 20220907
  Transmission Date: 20221027
  Serious: No
  Sender: FDA-Public Use
  Company Number: US-ARIS GLOBAL-202107-1249

PATIENT
  Sex: Female

DRUGS (14)
  1. OXERVATE [Suspect]
     Active Substance: CENEGERMIN-BKBJ
     Indication: Neurotrophic keratopathy
     Route: 047
     Dates: start: 20210713
  2. OFLOXACIN [Concomitant]
     Active Substance: OFLOXACIN
  3. TIMOLOL LATANOPROST [Concomitant]
  4. BRILINTA [Concomitant]
     Active Substance: TICAGRELOR
  5. AMLODIPINE BESYLATE [Concomitant]
     Active Substance: AMLODIPINE BESYLATE
  6. LEVOTHYROXINE [Concomitant]
     Active Substance: LEVOTHYROXINE
  7. ASPIRIN [Concomitant]
     Active Substance: ASPIRIN
  8. MAGNESIUM [Concomitant]
     Active Substance: MAGNESIUM
  9. DULOXETINE HYDROCHLORIDE [Concomitant]
     Active Substance: DULOXETINE HYDROCHLORIDE
     Dosage: DELAYED-RELEASE CAPSULE
  10. VITAMIN D3 [Concomitant]
     Active Substance: CHOLECALCIFEROL
     Dosage: 100000/G
  11. VITAMIN C [Concomitant]
     Active Substance: ASCORBIC ACID
  12. PREGABALIN [Concomitant]
     Active Substance: PREGABALIN
  13. SIMVASTATIN [Concomitant]
     Active Substance: SIMVASTATIN
  14. RANOLAZINE [Concomitant]
     Active Substance: RANOLAZINE
     Dosage: EXTENDED-RELEASE TABLET 12 HOURS

REACTIONS (2)
  - Abnormal sensation in eye [Unknown]
  - Eye pain [Unknown]
